FAERS Safety Report 4921240-9 (Version None)
Quarter: 2006Q1

REPORT INFORMATION
  Report Type: 
  Country: None (occurrence: None)
  Receive Date: 20060224
  Receipt Date: 20060120
  Transmission Date: 20060701
  Serious: Yes (Other)
  Sender: FDA-Public Use
  Company Number: PHRM2006FR00576

PATIENT
  Age: 56 Year
  Sex: Male
  Weight: 78 kg

DRUGS (1)
  1. LAMISIL [Suspect]
     Indication: INTERTRIGO CANDIDA
     Dosage: 250 MG, QD
     Route: 048
     Dates: start: 20050725, end: 20051215

REACTIONS (4)
  - ARRHYTHMIA [None]
  - ASTHENIA [None]
  - MALAISE [None]
  - PALPITATIONS [None]
